FAERS Safety Report 22243854 (Version 1)
Quarter: 2023Q2

REPORT INFORMATION
  Report Type: Report from Study
  Country: US (occurrence: US)
  Receive Date: 20230424
  Receipt Date: 20230424
  Transmission Date: 20230721
  Serious: Yes (Other)
  Sender: FDA-Public Use
  Company Number: US-ABBVIE-4737235

PATIENT
  Sex: Female

DRUGS (1)
  1. HUMIRA [Suspect]
     Active Substance: ADALIMUMAB
     Indication: Psoriasis
     Route: 058

REACTIONS (5)
  - Knee arthroplasty [Unknown]
  - Hip arthroplasty [Unknown]
  - Foot deformity [Unknown]
  - Intervertebral disc disorder [Unknown]
  - Back pain [Unknown]

NARRATIVE: CASE EVENT DATE: 20150101
